FAERS Safety Report 7556931-7 (Version None)
Quarter: 2011Q2

REPORT INFORMATION
  Report Type: 
  Country: None (occurrence: None)
  Receive Date: 20110620
  Receipt Date: 20110607
  Transmission Date: 20111010
  Serious: Yes (Other)
  Sender: FDA-Public Use
  Company Number: PHHY2011US31379

PATIENT
  Sex: Female

DRUGS (9)
  1. CEFDINIR [Suspect]
     Dosage: 300 MG
  2. DONATOL [Concomitant]
     Dosage: TID
  3. SYNTHROID [Concomitant]
     Dosage: UNK
  4. FIORINAL [Concomitant]
     Dosage: AS NEEDED
  5. FENTANYL-100 [Concomitant]
     Dosage: UNK
  6. DIAZEPAM [Concomitant]
     Dosage: UNK
  7. OXYCODONE [Concomitant]
     Dosage: AS NEEDED
  8. VIVELLE-DOT [Suspect]
     Dosage: 0.1, ONCE EVERY 3 AND HALF DAYS
     Route: 062
  9. SOMA [Concomitant]
     Dosage: AS NEEDED

REACTIONS (14)
  - APPLICATION SITE ERYTHEMA [None]
  - CHEST DISCOMFORT [None]
  - APPLICATION SITE RASH [None]
  - HYPERSENSITIVITY [None]
  - APHONIA [None]
  - DYSPNOEA [None]
  - PHARYNGEAL OEDEMA [None]
  - EYE SWELLING [None]
  - AURICULAR SWELLING [None]
  - DYSPHONIA [None]
  - SWELLING FACE [None]
  - ERYTHEMA [None]
  - SWELLING [None]
  - APPLICATION SITE REACTION [None]
